FAERS Safety Report 11895187 (Version 1)
Quarter: 2016Q1

REPORT INFORMATION
  Report Type: Spontaneous
  Country: US (occurrence: US)
  Receive Date: 20160107
  Receipt Date: 20160107
  Transmission Date: 20160526
  Serious: No
  Sender: FDA-Public Use
  Company Number: US-PFIZER INC-2015451123

PATIENT
  Age: 56 Year
  Sex: Male

DRUGS (1)
  1. SUTENT [Suspect]
     Active Substance: SUNITINIB MALATE
     Indication: RENAL CANCER
     Dosage: 50 MG, CYCLIC (ONCE DAILY FOR 4 WEEKS ON FOLLOWED BY 2 WEEK BREAK)
     Route: 048
     Dates: start: 201504

REACTIONS (1)
  - Nausea [Unknown]
